FAERS Safety Report 26064053 (Version 1)
Quarter: 2025Q4

REPORT INFORMATION
  Report Type: Spontaneous
  Country: US (occurrence: US)
  Receive Date: 20251119
  Receipt Date: 20251119
  Transmission Date: 20260118
  Serious: Yes (Life-Threatening, Hospitalization)
  Sender: ACCORD
  Company Number: US-MLMSERVICE-20251029-PI691196-00049-1

PATIENT
  Age: 45 Year
  Sex: Female

DRUGS (12)
  1. AMITRIPTYLINE [Suspect]
     Active Substance: AMITRIPTYLINE
     Dosage: PILL
     Route: 048
  2. BUPROPION HYDROCHLORIDE [Suspect]
     Active Substance: BUPROPION HYDROCHLORIDE
     Dosage: EXTENDED-RELEASE PILL
     Route: 048
  3. BUSPIRONE [Suspect]
     Active Substance: BUSPIRONE HYDROCHLORIDE
     Dosage: PILL
     Route: 048
  4. QUETIAPINE FUMARATE [Suspect]
     Active Substance: QUETIAPINE FUMARATE
     Dosage: PILL
     Route: 048
  5. PRAZOSIN [Suspect]
     Active Substance: PRAZOSIN
     Dosage: PILL
     Route: 048
  6. DULOXETINE [Suspect]
     Active Substance: DULOXETINE
     Dosage: PILL
     Route: 048
  7. HYDROXYZINE [Suspect]
     Active Substance: HYDROXYZINE HYDROCHLORIDE
     Dosage: PILL
     Route: 048
  8. DOXEPIN [Suspect]
     Active Substance: DOXEPIN
     Dosage: PILL
     Route: 048
  9. MELOXICAM [Suspect]
     Active Substance: MELOXICAM
     Dosage: PILL
     Route: 048
  10. LOPERAMIDE [Suspect]
     Active Substance: LOPERAMIDE
     Dosage: PILL
     Route: 048
  11. LAMOTRIGINE [Suspect]
     Active Substance: LAMOTRIGINE
     Dosage: PILL
     Route: 048
  12. METFORMIN [Suspect]
     Active Substance: METFORMIN HYDROCHLORIDE
     Dosage: PILL
     Route: 048

REACTIONS (7)
  - Generalised tonic-clonic seizure [Unknown]
  - Cardiogenic shock [Unknown]
  - Corneal reflex decreased [Unknown]
  - Pupillary reflex impaired [Unknown]
  - Areflexia [Unknown]
  - Bezoar [Unknown]
  - Intentional overdose [Unknown]
